FAERS Safety Report 6133708-0 (Version None)
Quarter: 2009Q1

REPORT INFORMATION
  Report Type: 
  Country: None (occurrence: None)
  Receive Date: 20090326
  Receipt Date: 20090320
  Transmission Date: 20090719
  Serious: Yes (Other)
  Sender: FDA-Public Use
  Company Number: B0566369A

PATIENT
  Sex: Male

DRUGS (4)
  1. TELZIR [Suspect]
     Indication: HIV INFECTION
     Route: 048
     Dates: start: 20050329, end: 20070412
  2. RETROVIR [Suspect]
     Indication: HIV INFECTION
     Route: 048
     Dates: end: 20070412
  3. NORVIR [Suspect]
     Indication: HIV INFECTION
     Route: 048
     Dates: end: 20070412
  4. VIDEX [Suspect]
     Indication: HIV INFECTION
     Route: 048
     Dates: end: 20070412

REACTIONS (2)
  - MITOCHONDRIAL TOXICITY [None]
  - MYOSITIS [None]
